FAERS Safety Report 7783906-5 (Version None)
Quarter: 2011Q3

REPORT INFORMATION
  Report Type: 
  Country: None (occurrence: None)
  Receive Date: 20110928
  Receipt Date: 20110919
  Transmission Date: 20111222
  Serious: Yes (Hospitalization)
  Sender: FDA-Public Use
  Company Number: FR-GLAXOSMITHKLINE-B0748294A

PATIENT
  Sex: Female

DRUGS (1)
  1. SUMATRIPTAN SUCCINATE [Suspect]
     Indication: MIGRAINE
     Route: 045
     Dates: start: 20110615

REACTIONS (5)
  - RETROGRADE AMNESIA [None]
  - TRANSIENT GLOBAL AMNESIA [None]
  - ANTEROGRADE AMNESIA [None]
  - DISORIENTATION [None]
  - HEPATOCELLULAR INJURY [None]
